FAERS Safety Report 4709370-8 (Version None)
Quarter: 2005Q3

REPORT INFORMATION
  Report Type: 
  Country: None (occurrence: None)
  Receive Date: 20050706
  Receipt Date: 20050706
  Transmission Date: 20060218
  Serious: Yes (Hospitalization)
  Sender: FDA-Public Use
  Company Number: None

PATIENT
  Age: 80 Year
  Sex: Male
  Weight: 74.1 kg

DRUGS (13)
  1. AMIODARONE    200MG [Suspect]
     Indication: ATRIAL FIBRILLATION
     Dosage: 100MG   DAILY   ORAL
     Route: 048
     Dates: start: 20031017, end: 20050526
  2. ALBUTEROL / IPRATROP [Concomitant]
  3. CARVEDILOL [Concomitant]
  4. LANOXIN [Concomitant]
  5. FLUNISOLIDE [Concomitant]
  6. FUROSEMIDE [Concomitant]
  7. GLIPIZIDE [Concomitant]
  8. SYNTHROID [Concomitant]
  9. LISINOPRIL [Concomitant]
  10. METOCLOPRAMIDE HCL [Concomitant]
  11. OMEPRAZOLE [Concomitant]
  12. PRECISION GLUCOSE TEST STRIP [Concomitant]
  13. SIMVASTATIN [Concomitant]

REACTIONS (17)
  - ANGIOPATHY [None]
  - CHEST DISCOMFORT [None]
  - COUGH [None]
  - DIZZINESS [None]
  - DYSPNOEA [None]
  - FATIGUE [None]
  - FEELING ABNORMAL [None]
  - INSOMNIA [None]
  - INTERSTITIAL LUNG DISEASE [None]
  - OBSTRUCTIVE AIRWAYS DISORDER [None]
  - PAIN IN EXTREMITY [None]
  - PLEURAL EFFUSION [None]
  - PNEUMONITIS [None]
  - PRODUCTIVE COUGH [None]
  - PULMONARY FIBROSIS [None]
  - SPUTUM DISCOLOURED [None]
  - WEIGHT DECREASED [None]
